FAERS Safety Report 20750885 (Version 1)
Quarter: 2022Q2

REPORT INFORMATION
  Report Type: Spontaneous
  Country: US (occurrence: None)
  Receive Date: 20220426
  Receipt Date: 20220426
  Transmission Date: 20220721
  Serious: Yes (Other)
  Sender: FDA-Public Use
  Company Number: None

PATIENT
  Sex: Female
  Weight: 83.91 kg

DRUGS (1)
  1. LEVETIRACETAM [Suspect]
     Active Substance: LEVETIRACETAM
     Indication: Partial seizures
     Dates: start: 202111, end: 20220117

REACTIONS (6)
  - Hypoaesthesia [None]
  - Depression [None]
  - Suicidal ideation [None]
  - Anxiety [None]
  - Muscle spasms [None]
  - Blood pressure increased [None]
